FAERS Safety Report 22304101 (Version 1)
Quarter: 2023Q2

REPORT INFORMATION
  Report Type: Spontaneous
  Country: CN (occurrence: CN)
  Receive Date: 20230510
  Receipt Date: 20230510
  Transmission Date: 20230722
  Serious: Yes (Hospitalization)
  Sender: FDA-Public Use
  Company Number: CN-PFIZER INC-PV202300081836

PATIENT
  Age: 48 Year
  Sex: Male

DRUGS (4)
  1. METHOTREXATE SODIUM [Suspect]
     Active Substance: METHOTREXATE SODIUM
     Indication: Chemotherapy
     Dosage: 5.9 G, 1X/DAY
     Route: 041
     Dates: start: 20230414, end: 20230414
  2. CYTARABINE [Suspect]
     Active Substance: CYTARABINE
     Indication: Chemotherapy
     Dosage: 3 G, 2X/DAY (Q12H D2-D3)
     Route: 041
     Dates: start: 20230415, end: 20230416
  3. RITUXIMAB [Suspect]
     Active Substance: RITUXIMAB
     Indication: Chemotherapy
     Dosage: 600 MG, 1X/DAY
     Route: 041
     Dates: start: 20230413, end: 20230413
  4. BRUKINSA [Suspect]
     Active Substance: ZANUBRUTINIB
     Indication: Chemotherapy
     Dosage: 160 MG, 2X/DAY (D1-D21)
     Route: 048
     Dates: start: 20230413, end: 20230427

REACTIONS (3)
  - Myelosuppression [Recovering/Resolving]
  - Granulocyte count decreased [Recovering/Resolving]
  - Pyrexia [Recovered/Resolved]

NARRATIVE: CASE EVENT DATE: 20230401
